FAERS Safety Report 24913035 (Version 1)
Quarter: 2025Q1

REPORT INFORMATION
  Report Type: Spontaneous
  Country: NL (occurrence: NL)
  Receive Date: 20250201
  Receipt Date: 20250201
  Transmission Date: 20250409
  Serious: Yes (Other)
  Sender: AUROBINDO
  Company Number: NL-UCBSA-2024066964

PATIENT
  Age: 81 Year
  Sex: Female

DRUGS (2)
  1. APIXABAN [Suspect]
     Active Substance: APIXABAN
     Indication: Product used for unknown indication
     Dosage: 5 MILLIGRAM, ONCE A DAY (2.5 MILLIGRAM, 2X/DAY (BID))
     Route: 065
     Dates: end: 20241229
  2. EVENITY [Suspect]
     Active Substance: ROMOSOZUMAB-AQQG
     Indication: Osteoporosis
     Route: 058
     Dates: start: 20240624

REACTIONS (3)
  - Arrhythmia [Not Recovered/Not Resolved]
  - Abdominal wall haematoma [Recovered/Resolved]
  - Iliac artery perforation [Recovered/Resolved]

NARRATIVE: CASE EVENT DATE: 20240624
